FAERS Safety Report 4456350-6 (Version None)
Quarter: 2004Q3

REPORT INFORMATION
  Report Type: 
  Country: None (occurrence: None)
  Receive Date: 20040902
  Receipt Date: 20040430
  Transmission Date: 20050211
  Serious: No
  Sender: FDA-Public Use
  Company Number: 200417747BWH

PATIENT
  Age: 68 Year
  Sex: Male

DRUGS (6)
  1. LEVITRA [Suspect]
     Indication: ERECTILE DYSFUNCTION
     Dosage: 10 MG, TOTAL DAILY, ORAL
     Route: 048
  2. LEVITRA [Suspect]
     Indication: URINARY RETENTION
     Dosage: 10 MG, TOTAL DAILY, ORAL
     Route: 048
  3. PRINZIDE [Concomitant]
  4. ATENOLOL [Concomitant]
  5. PRAVACHOL [Concomitant]
  6. VIAGRA [Concomitant]

REACTIONS (1)
  - URINARY RETENTION [None]
